FAERS Safety Report 7258613-8 (Version None)
Quarter: 2011Q1

REPORT INFORMATION
  Report Type: 
  Country: None (occurrence: None)
  Receive Date: 20110129
  Receipt Date: 20100502
  Transmission Date: 20110831
  Serious: No
  Sender: FDA-Public Use
  Company Number: US-ABBOTT-09P-163-0567810-00

PATIENT
  Sex: Female
  Weight: 59.928 kg

DRUGS (5)
  1. PREDNISONE [Concomitant]
     Indication: CROHN'S DISEASE
     Route: 048
     Dates: start: 20070101
  2. METOPROLOL [Concomitant]
     Indication: TACHYCARDIA
     Dosage: 1/2 TAB BID
     Route: 047
  3. HUMIRA [Suspect]
     Route: 058
     Dates: start: 20090331
  4. HUMIRA [Suspect]
     Indication: CROHN'S DISEASE
     Route: 058
     Dates: start: 20090123, end: 20090325
  5. MULTI-VITAMIN [Concomitant]
     Indication: VITAMIN SUPPLEMENTATION
     Route: 048

REACTIONS (4)
  - VISION BLURRED [None]
  - DIFFERENTIAL WHITE BLOOD CELL COUNT ABNORMAL [None]
  - CONTUSION [None]
  - PARAESTHESIA [None]
